FAERS Safety Report 17226709 (Version 6)
Quarter: 2020Q2

REPORT INFORMATION
  Report Type: Report from Study
  Country: CZ (occurrence: CZ)
  Receive Date: 20200102
  Receipt Date: 20200404
  Transmission Date: 20200713
  Serious: Yes (Life-Threatening)
  Sender: FDA-Public Use
  Company Number: CZ-NOVOPROD-704883

PATIENT
  Age: 67 Year
  Sex: Female
  Weight: 75 kg

DRUGS (2)
  1. PLACEBO [Suspect]
     Active Substance: UNSPECIFIED INGREDIENT
     Indication: TYPE 2 DIABETES MELLITUS
     Dosage: 1.0,UNIT:,ONCE PER WEEK
     Route: 058
     Dates: start: 20191225, end: 20191230
  2. SEMAGLUTIDE B 1.34 MG/ML PDS290 [Suspect]
     Active Substance: SEMAGLUTIDE
     Indication: TYPE 2 DIABETES MELLITUS
     Dosage: 1.0,UNIT:,ONCE PER WEEK
     Route: 058
     Dates: start: 20190827, end: 20191230

REACTIONS (1)
  - Bile duct stenosis [Not Recovered/Not Resolved]

NARRATIVE: CASE EVENT DATE: 20191227
